FAERS Safety Report 24806386 (Version 2)
Quarter: 2025Q3

REPORT INFORMATION
  Report Type: Report from Study
  Country: US (occurrence: US)
  Receive Date: 20250103
  Receipt Date: 20250718
  Transmission Date: 20251021
  Serious: No
  Sender: SUNOVION
  Company Number: US-SMPA-2024SPA006332AA

PATIENT

DRUGS (2)
  1. ORGOVYX [Suspect]
     Active Substance: RELUGOLIX
     Indication: Prostate cancer
     Route: 048
  2. ORGOVYX [Suspect]
     Active Substance: RELUGOLIX
     Dosage: 120 MG, QD
     Route: 048
     Dates: start: 20241123

REACTIONS (9)
  - Feeling of body temperature change [Unknown]
  - Poor quality sleep [Unknown]
  - Neuralgia [Unknown]
  - Paraesthesia [Unknown]
  - Feeling abnormal [Unknown]
  - Initial insomnia [Unknown]
  - Hot flush [Unknown]
  - Blood triglycerides increased [Unknown]
  - Pain in extremity [Unknown]
